FAERS Safety Report 8229323-5 (Version None)
Quarter: 2012Q1

REPORT INFORMATION
  Report Type: 
  Country: None (occurrence: None)
  Receive Date: 20120322
  Receipt Date: 20120319
  Transmission Date: 20120608
  Serious: Yes (Other)
  Sender: FDA-Public Use
  Company Number: US-PFIZER INC-2012071529

PATIENT
  Sex: Female
  Weight: 68.027 kg

DRUGS (8)
  1. LYRICA [Suspect]
     Indication: ARTHRALGIA
  2. LORTAB [Suspect]
     Indication: MUSCLE SPASMS
     Dosage: UNK
  3. FLEXERIL [Suspect]
     Indication: MUSCLE SPASMS
     Dosage: 5 MG, UNK
  4. ADVAIR DISKUS 100/50 [Concomitant]
     Indication: CHRONIC OBSTRUCTIVE PULMONARY DISEASE
     Dosage: UNK
  5. LYRICA [Suspect]
     Indication: NECK PAIN
     Dosage: 50 MG, UNK
  6. LYRICA [Suspect]
     Indication: BACK PAIN
  7. NYQUIL [Suspect]
     Dosage: UNK
  8. ALBUTEROL SULFATE [Concomitant]
     Indication: CHRONIC OBSTRUCTIVE PULMONARY DISEASE
     Dosage: UNK

REACTIONS (6)
  - ACTIVITIES OF DAILY LIVING IMPAIRED [None]
  - DRUG INEFFECTIVE [None]
  - NECK PAIN [None]
  - NERVOUS SYSTEM DISORDER [None]
  - FEELING ABNORMAL [None]
  - BACK PAIN [None]
